FAERS Safety Report 22160971 (Version 1)
Quarter: 2023Q1

REPORT INFORMATION
  Report Type: Spontaneous
  Country: US (occurrence: None)
  Receive Date: 20230330
  Receipt Date: 20230330
  Transmission Date: 20230417
  Serious: No
  Sender: FDA-Public Use
  Company Number: None

PATIENT
  Age: 69 Year
  Sex: Male

DRUGS (1)
  1. REVLIMID [Suspect]
     Active Substance: LENALIDOMIDE
     Indication: Plasma cell myeloma
     Dosage: FREQUENCY : DAILY;?
     Route: 048
     Dates: start: 20200930

REACTIONS (8)
  - Dizziness [None]
  - Dysphonia [None]
  - Chest pain [None]
  - Blood glucose increased [None]
  - Blood culture positive [None]
  - Pneumonia bacterial [None]
  - Bacteraemia [None]
  - Bacillus bacteraemia [None]

NARRATIVE: CASE EVENT DATE: 20230307
